FAERS Safety Report 22781711 (Version 4)
Quarter: 2023Q4

REPORT INFORMATION
  Report Type: Report from Study
  Country: US (occurrence: US)
  Receive Date: 20230803
  Receipt Date: 20231214
  Transmission Date: 20240109
  Serious: Yes (Hospitalization)
  Sender: FDA-Public Use
  Company Number: US-002147023-NVSC2023US169994

PATIENT
  Sex: Female

DRUGS (2)
  1. ENTRESTO [Suspect]
     Active Substance: SACUBITRIL\VALSARTAN
     Indication: Product used for unknown indication
     Dosage: UNK UNK, BID (49/51 MG)
     Route: 048
     Dates: start: 202307
  2. JARDIANCE [Concomitant]
     Active Substance: EMPAGLIFLOZIN
     Indication: Product used for unknown indication
     Route: 065

REACTIONS (7)
  - Pain [Unknown]
  - Insomnia [Unknown]
  - Wrong technique in product usage process [Unknown]
  - Hypotension [Unknown]
  - Epistaxis [Unknown]
  - Contusion [Unknown]
  - Fungal infection [Recovered/Resolved]
